FAERS Safety Report 6035478-3 (Version None)
Quarter: 2009Q1

REPORT INFORMATION
  Report Type: 
  Country: None (occurrence: None)
  Receive Date: 20090112
  Receipt Date: 20090112
  Transmission Date: 20090719
  Serious: Yes (Other)
  Sender: FDA-Public Use
  Company Number: None

PATIENT
  Age: 43 Year
  Sex: Female
  Weight: 87.0906 kg

DRUGS (1)
  1. ANTHRALIN CRM [Suspect]
     Indication: PSORIASIS
     Dosage: SMALL AMOUNT TO AFFECTED AREA 2 X DAILY TOP
     Route: 061
     Dates: start: 20090106, end: 20090106

REACTIONS (1)
  - APPLICATION SITE BURN [None]
